FAERS Safety Report 24127918 (Version 4)
Quarter: 2025Q1

REPORT INFORMATION
  Report Type: Report from Study
  Country: US (occurrence: US)
  Receive Date: 20240723
  Receipt Date: 20250213
  Transmission Date: 20250409
  Serious: Yes (Life-Threatening, Hospitalization)
  Sender: CALLIDITAS THERAPEUTICS AB
  Company Number: US-Calliditas-2024CAL01253

PATIENT
  Age: 60 Year
  Sex: Male

DRUGS (3)
  1. TARPEYO [Suspect]
     Active Substance: BUDESONIDE
     Indication: IgA nephropathy
     Route: 048
     Dates: start: 20230515
  2. MOUNJARO [Concomitant]
     Active Substance: TIRZEPATIDE
  3. FILSPARI [Concomitant]
     Active Substance: SPARSENTAN

REACTIONS (4)
  - Pneumonia [Recovered/Resolved]
  - Intervertebral discitis [Recovered/Resolved]
  - Pneumonia [Recovered/Resolved]
  - Haematological infection [Recovered/Resolved]

NARRATIVE: CASE EVENT DATE: 20231001
